FAERS Safety Report 12976966 (Version 12)
Quarter: 2017Q4

REPORT INFORMATION
  Report Type: Report from Study
  Country: CO (occurrence: CO)
  Receive Date: 20161128
  Receipt Date: 20171229
  Transmission Date: 20180320
  Serious: Yes (Death, Life-Threatening, Hospitalization, Disabling, Other)
  Sender: FDA-Public Use
  Company Number: PHHY2016CO162843

PATIENT
  Age: 72 Year
  Sex: Male
  Weight: 70 kg

DRUGS (6)
  1. EXJADE [Suspect]
     Active Substance: DEFERASIROX
     Dosage: 500 MG, QD
     Route: 048
  2. LOSARTAN. [Suspect]
     Active Substance: LOSARTAN
     Indication: PRODUCT USED FOR UNKNOWN INDICATION
     Route: 065
  3. FOLIC ACID. [Concomitant]
     Active Substance: FOLIC ACID
     Indication: PRODUCT USED FOR UNKNOWN INDICATION
     Route: 065
  4. AZACITIDINE. [Concomitant]
     Active Substance: AZACITIDINE
     Indication: PRODUCT USED FOR UNKNOWN INDICATION
     Route: 065
  5. EXJADE [Suspect]
     Active Substance: DEFERASIROX
     Indication: IRON OVERLOAD
     Dosage: 500 MG, TID (3 TIMES A DAY)
     Route: 048
     Dates: start: 20161027
  6. ERYTHROPOIETIN [Concomitant]
     Active Substance: ERYTHROPOIETIN
     Indication: PRODUCT USED FOR UNKNOWN INDICATION
     Route: 065

REACTIONS (27)
  - Cardiac arrest [Fatal]
  - Angina pectoris [Unknown]
  - Gait disturbance [Unknown]
  - Splenomegaly [Unknown]
  - Thrombosis [Unknown]
  - Cardiomegaly [Unknown]
  - Pneumonia [Unknown]
  - Haemoglobin decreased [Unknown]
  - Asthenia [Unknown]
  - Inappropriate schedule of drug administration [Unknown]
  - Blood pressure increased [Unknown]
  - Urinary tract infection [Unknown]
  - Renal disorder [Unknown]
  - Pain [Unknown]
  - Dyspnoea [Unknown]
  - Back pain [Unknown]
  - Platelet count decreased [Unknown]
  - Infection [Unknown]
  - Blood pressure decreased [Unknown]
  - Serum ferritin abnormal [Unknown]
  - Dizziness [Unknown]
  - Myocardial infarction [Fatal]
  - Pleural effusion [Unknown]
  - Kidney enlargement [Unknown]
  - Peripheral swelling [Unknown]
  - Spinal pain [Unknown]
  - Tremor [Unknown]

NARRATIVE: CASE EVENT DATE: 20171026
